FAERS Safety Report 14483800 (Version 2)
Quarter: 2018Q2

REPORT INFORMATION
  Report Type: Spontaneous
  Country: US (occurrence: US)
  Receive Date: 20180205
  Receipt Date: 20180503
  Transmission Date: 20180711
  Serious: No
  Sender: FDA-Public Use
  Company Number: US-SUN PHARMACEUTICAL INDUSTRIES LTD-2018US-162160

PATIENT
  Age: 74 Year
  Sex: Female

DRUGS (2)
  1. BROMSITE [Suspect]
     Active Substance: BROMFENAC SODIUM
     Dosage: 1 GTT, BID
     Route: 047
     Dates: start: 2017, end: 20170831
  2. BROMSITE [Suspect]
     Active Substance: BROMFENAC SODIUM
     Indication: EYE INFLAMMATION
     Dosage: 1 GTT, QID
     Route: 047
     Dates: start: 20170630

REACTIONS (5)
  - Eyelid oedema [Recovered/Resolved]
  - Ocular hyperaemia [Recovered/Resolved]
  - Foreign body sensation in eyes [Recovered/Resolved]
  - Blepharitis [Recovered/Resolved]
  - Off label use [Recovered/Resolved]

NARRATIVE: CASE EVENT DATE: 20170630
